FAERS Safety Report 6686520-8 (Version None)
Quarter: 2010Q2

REPORT INFORMATION
  Report Type: 
  Country: None (occurrence: None)
  Receive Date: 20100419
  Receipt Date: 20100414
  Transmission Date: 20101027
  Serious: Yes (Death)
  Sender: FDA-Public Use
  Company Number: EG-ROCHE-696770

PATIENT
  Sex: Female

DRUGS (1)
  1. AVASTIN [Suspect]
     Route: 065
     Dates: start: 20100411, end: 20100411

REACTIONS (1)
  - INFUSION RELATED REACTION [None]
